FAERS Safety Report 5951633-2 (Version None)
Quarter: 2008Q4

REPORT INFORMATION
  Report Type: 
  Country: None (occurrence: None)
  Receive Date: 20081110
  Receipt Date: 20081029
  Transmission Date: 20090506
  Serious: Yes (Hospitalization, Other)
  Sender: FDA-Public Use
  Company Number: 100#03#2008-05365

PATIENT
  Age: 75 Year
  Sex: Male

DRUGS (5)
  1. CITALOPRAM HYDROBROMIDE [Suspect]
     Indication: DEPRESSION
     Dosage: 20 MG ONCE
  2. AMIODARONE HCL [Suspect]
     Indication: ATRIAL FIBRILLATION
     Dates: end: 19990201
  3. AMIODARONE HCL [Suspect]
     Indication: ATRIAL FIBRILLATION
     Dates: start: 20020401, end: 20060101
  4. AMIODARONE HCL [Suspect]
     Indication: ATRIAL FIBRILLATION
     Dates: start: 20060401, end: 20070601
  5. FLUOXETINE (FLUOXTINE) [Concomitant]

REACTIONS (17)
  - AGITATION [None]
  - AGORAPHOBIA [None]
  - ANXIETY [None]
  - BRADYCARDIA [None]
  - CRYING [None]
  - DECREASED INTEREST [None]
  - DELUSION [None]
  - DEPRESSED MOOD [None]
  - DEPRESSION [None]
  - DRUG EFFECT DECREASED [None]
  - DRUG INEFFECTIVE [None]
  - HALLUCINATION, AUDITORY [None]
  - INSOMNIA [None]
  - PANIC ATTACK [None]
  - PSYCHOTIC DISORDER [None]
  - RESTLESSNESS [None]
  - TEARFULNESS [None]
